FAERS Safety Report 24242006 (Version 1)
Quarter: 2024Q3

REPORT INFORMATION
  Report Type: Spontaneous
  Country: US (occurrence: None)
  Receive Date: 20240822
  Receipt Date: 20240822
  Transmission Date: 20241017
  Serious: No
  Sender: Public
  Company Number: None

PATIENT
  Age: 41 Year
  Sex: Female

DRUGS (1)
  1. ADEMPAS [Suspect]
     Active Substance: RIOCIGUAT
     Indication: Pulmonary arterial hypertension
     Dosage: 1MG TID ORAL?
     Route: 048
     Dates: start: 20240618

REACTIONS (2)
  - Chest pain [None]
  - Dizziness [None]

NARRATIVE: CASE EVENT DATE: 20240804
